FAERS Safety Report 18417631 (Version 1)
Quarter: 2020Q4

REPORT INFORMATION
  Report Type: Spontaneous
  Country: US (occurrence: US)
  Receive Date: 20201022
  Receipt Date: 20201022
  Transmission Date: 20210114
  Serious: No
  Sender: FDA-Public Use
  Company Number: US-SEATTLE GENETICS-2020SGN03977

PATIENT
  Sex: Male

DRUGS (4)
  1. TUKYSA [Suspect]
     Active Substance: TUCATINIB
     Indication: BREAST CANCER MALE
  2. TUKYSA [Suspect]
     Active Substance: TUCATINIB
     Indication: BLADDER CANCER
  3. XELODA [Suspect]
     Active Substance: CAPECITABINE
     Indication: BREAST CANCER MALE
  4. XELODA [Suspect]
     Active Substance: CAPECITABINE
     Indication: BLADDER CANCER

REACTIONS (11)
  - Lethargy [Unknown]
  - Depression [Unknown]
  - Vomiting [Recovering/Resolving]
  - Decreased appetite [Unknown]
  - Product dose omission issue [Unknown]
  - Nausea [Unknown]
  - Off label use [Unknown]
  - Fatigue [Unknown]
  - Illness [Unknown]
  - Red blood cell count decreased [Unknown]
  - Wrong technique in product usage process [Unknown]
